FAERS Safety Report 21434002 (Version 1)
Quarter: 2022Q4

REPORT INFORMATION
  Report Type: Spontaneous
  Country: US (occurrence: US)
  Receive Date: 20221010
  Receipt Date: 20221010
  Transmission Date: 20230113
  Serious: No
  Sender: FDA-Public Use
  Company Number: US-SA-SAC20221004000318

PATIENT
  Sex: Female

DRUGS (3)
  1. DUPIXENT [Suspect]
     Active Substance: DUPILUMAB
     Indication: Dermatitis atopic
     Dosage: 300 MG, QOW
     Route: 058
  2. CETIRIZINE HYDROCHLORIDE [Concomitant]
     Active Substance: CETIRIZINE HYDROCHLORIDE
  3. NIKKI [Concomitant]
     Active Substance: DROSPIRENONE\ETHINYL ESTRADIOL

REACTIONS (2)
  - Dermatitis atopic [Unknown]
  - Hypersensitivity [Unknown]
